FAERS Safety Report 25665868 (Version 1)
Quarter: 2025Q3

REPORT INFORMATION
  Report Type: Spontaneous
  Country: US (occurrence: US)
  Receive Date: 20250811
  Receipt Date: 20250811
  Transmission Date: 20251021
  Serious: Yes (Hospitalization, Other)
  Sender: DR REDDYS
  Company Number: US-DRL-USA-USA/2025/08/011931

PATIENT
  Age: 75 Year
  Sex: Female

DRUGS (1)
  1. DAPTOMYCIN [Suspect]
     Active Substance: DAPTOMYCIN
     Indication: Injection site ulcer

REACTIONS (3)
  - Eosinophilic pneumonia acute [Recovering/Resolving]
  - Pyoderma gangrenosum [Recovering/Resolving]
  - Drug ineffective [Unknown]
